FAERS Safety Report 18796797 (Version 1)
Quarter: 2021Q1

REPORT INFORMATION
  Report Type: Spontaneous
  Country: CH (occurrence: CH)
  Receive Date: 20210127
  Receipt Date: 20210127
  Transmission Date: 20210419
  Serious: Yes (Death, Other)
  Sender: FDA-Public Use
  Company Number: NVSC2021CH018501

PATIENT
  Age: 70 Year
  Sex: Male

DRUGS (6)
  1. CLADRIBINE. [Suspect]
     Active Substance: CLADRIBINE
     Indication: SYSTEMIC MASTOCYTOSIS
     Dosage: UNK
     Route: 065
  2. MIDOSTAURIN [Suspect]
     Active Substance: MIDOSTAURIN
     Indication: SYSTEMIC MASTOCYTOSIS
     Dosage: UNK
     Route: 065
     Dates: start: 201811, end: 201812
  3. LEVOCETIRIZINE [Suspect]
     Active Substance: LEVOCETIRIZINE
     Dosage: UNK
     Route: 065
  4. RANITIDINE. [Suspect]
     Active Substance: RANITIDINE
     Dosage: UNK
     Route: 065
  5. LEVOCETIRIZINE [Suspect]
     Active Substance: LEVOCETIRIZINE
     Indication: SYSTEMIC MASTOCYTOSIS
     Dosage: UNK
     Route: 065
     Dates: start: 201811, end: 201812
  6. RANITIDINE. [Suspect]
     Active Substance: RANITIDINE
     Indication: SYSTEMIC MASTOCYTOSIS
     Dosage: UNK
     Route: 065
     Dates: start: 201811, end: 201812

REACTIONS (4)
  - Product use in unapproved indication [Unknown]
  - Systemic mastocytosis [Unknown]
  - Death [Fatal]
  - Malignant neoplasm progression [Unknown]

NARRATIVE: CASE EVENT DATE: 202006
